FAERS Safety Report 6899023-2 (Version None)
Quarter: 2010Q3

REPORT INFORMATION
  Report Type: 
  Country: None (occurrence: None)
  Receive Date: 20100802
  Receipt Date: 20071213
  Transmission Date: 20110219
  Serious: No
  Sender: FDA-Public Use
  Company Number: US-PFIZER INC-2007104038

PATIENT
  Sex: Male
  Weight: 95.454 kg

DRUGS (3)
  1. LYRICA [Suspect]
     Indication: DIABETIC NEUROPATHY
     Dates: start: 20071101
  2. ACTOS [Concomitant]
  3. VALSARTAN [Concomitant]

REACTIONS (2)
  - CONFUSIONAL STATE [None]
  - PAIN IN EXTREMITY [None]
